FAERS Safety Report 9493440 (Version 2)
Quarter: 2013Q4

REPORT INFORMATION
  Report Type: Spontaneous
  Country: US (occurrence: US)
  Receive Date: 20130902
  Receipt Date: 20131004
  Transmission Date: 20140711
  Serious: Yes (Other)
  Sender: FDA-Public Use
  Company Number: US-PFIZER INC-2013251238

PATIENT
  Age: 62 Year
  Sex: Female
  Weight: 59.86 kg

DRUGS (6)
  1. LYRICA [Suspect]
     Indication: NEURALGIA
     Dosage: 100 MG, 3X/DAY
  2. GABAPENTIN [Suspect]
     Indication: NEURALGIA
     Dosage: 300 MG, 2X/DAY
     Dates: start: 2013, end: 2013
  3. LORTAB [Concomitant]
     Indication: PAIN
     Dosage: UNK
  4. PLAQUENIL [Concomitant]
     Indication: ARTHRITIS
     Dosage: 200 MG, 2X/DAY
  5. BABY ASPIRIN [Concomitant]
     Dosage: 81 MG, 1X/DAY
  6. CYMBALTA [Concomitant]
     Indication: ARTHRALGIA
     Dosage: 60 MG, 1X/DAY

REACTIONS (4)
  - Anal injury [Unknown]
  - Vaginal erosion [Unknown]
  - Drug ineffective [Unknown]
  - White blood cell count increased [Unknown]
